FAERS Safety Report 23839107 (Version 2)
Quarter: 2024Q2

REPORT INFORMATION
  Report Type: Spontaneous
  Country: US (occurrence: US)
  Receive Date: 20240509
  Receipt Date: 20240628
  Transmission Date: 20240716
  Serious: Yes (Other)
  Sender: FDA-Public Use
  Company Number: US-STRIDES ARCOLAB LIMITED-2024SP005364

PATIENT
  Age: 0 Year
  Sex: Male

DRUGS (7)
  1. TENOFOVIR DISOPROXIL FUMARATE [Suspect]
     Active Substance: TENOFOVIR DISOPROXIL FUMARATE
     Indication: Product used for unknown indication
     Dosage: UNK (THE PATIENT^S MOTHER RECEIVED 300MG/DAY FOR HIV INFECTION)
     Route: 064
     Dates: start: 20220901
  2. DARUNAVIR [Suspect]
     Active Substance: DARUNAVIR
     Indication: Product used for unknown indication
     Dosage: UNK (THE PATIENT^S MOTHER RECEIVED 1200 MG/DAY FOR HIV INFECTION)
     Route: 064
     Dates: start: 20210716
  3. TIVICAY [Suspect]
     Active Substance: DOLUTEGRAVIR SODIUM
     Indication: Product used for unknown indication
     Dosage: UNK (THE PATIENT^S MOTHER RECEIVED 500 MG/DAY FOR HIV INFECTION)
     Route: 064
     Dates: start: 20220901
  4. TIVICAY [Suspect]
     Active Substance: DOLUTEGRAVIR SODIUM
     Dosage: UNK (THE PATIENT^S MOTHER RECEIVED 50 MG/DAY FOR HIV INFECTION)
     Route: 064
     Dates: start: 20220901
  5. RITONAVIR [Suspect]
     Active Substance: RITONAVIR
     Indication: Product used for unknown indication
     Dosage: UNK (THE PATIENT^S MOTHER RECEIVED 200MG/DAY FOR HIV INFECTION)
     Route: 064
     Dates: start: 20170314
  6. RITONAVIR [Suspect]
     Active Substance: RITONAVIR
     Dosage: UNK (THE PATIENT^S MOTHER RECEIVED 200MG/DAY FOR HIV INFECTION)
     Route: 064
     Dates: start: 20170414
  7. FOLATE SODIUM [Suspect]
     Active Substance: FOLATE SODIUM
     Indication: Product used for unknown indication
     Dosage: UNK (THE PATIENT^S MOTHER RECEIVED ALL THREE TRIMESTERS)
     Route: 064

REACTIONS (5)
  - Scrotal cyst [Unknown]
  - Peritoneal cyst [Unknown]
  - Premature baby [Unknown]
  - Low birth weight baby [Unknown]
  - Foetal exposure during pregnancy [Unknown]

NARRATIVE: CASE EVENT DATE: 20240314
